FAERS Safety Report 7406891-4 (Version None)
Quarter: 2011Q2

REPORT INFORMATION
  Report Type: 
  Country: None (occurrence: None)
  Receive Date: 20110411
  Receipt Date: 20110315
  Transmission Date: 20111010
  Serious: Yes (Other)
  Sender: FDA-Public Use
  Company Number: US-BAXTER-2010BH026900

PATIENT

DRUGS (1)
  1. AMINO ACIDS NOS AND ELECTROLYTES NOS [Suspect]
     Indication: PARENTERAL NUTRITION
     Route: 065
     Dates: start: 20100801

REACTIONS (1)
  - CANDIDA SEPSIS [None]
